FAERS Safety Report 18929329 (Version 2)
Quarter: 2022Q1

REPORT INFORMATION
  Report Type: Spontaneous
  Country: US (occurrence: None)
  Receive Date: 20210223
  Receipt Date: 20220302
  Transmission Date: 20220424
  Serious: No
  Sender: FDA-Public Use
  Company Number: US-ROCHE-2589975

PATIENT
  Age: 61 Year
  Sex: Female

DRUGS (2)
  1. NUTROPIN [Suspect]
     Active Substance: SOMATROPIN
     Indication: Growth hormone deficiency
     Route: 065
     Dates: start: 202104
  2. NUTROPIN [Suspect]
     Active Substance: SOMATROPIN

REACTIONS (7)
  - Pain in jaw [Unknown]
  - Toothache [Unknown]
  - Swelling face [Unknown]
  - Back pain [Unknown]
  - Myalgia [Unknown]
  - Bone pain [Unknown]
  - Mass [Unknown]

NARRATIVE: CASE EVENT DATE: 20210427
